FAERS Safety Report 9609286 (Version 2)
Quarter: 2013Q4

REPORT INFORMATION
  Report Type: Spontaneous
  Country: DE (occurrence: DE)
  Receive Date: 20131009
  Receipt Date: 20131101
  Transmission Date: 20140711
  Serious: Yes (Hospitalization, Other)
  Sender: FDA-Public Use
  Company Number: DE-TAKEDA-TPG2013A00613

PATIENT
  Sex: 0

DRUGS (7)
  1. PIOGLITAZONE [Suspect]
     Indication: DIABETES MELLITUS
     Dosage: 30 MG, QD
     Dates: start: 20101029
  2. ENALAPRIL [Concomitant]
     Indication: HYPERTENSION
     Dosage: 20 MG, QD
     Route: 065
     Dates: start: 20100101
  3. STATIN [Concomitant]
     Indication: HYPERLIPIDAEMIA
     Dosage: UNK
     Route: 065
     Dates: start: 20100101
  4. UNSPECIFIED ANTIDEPRESSANT [Concomitant]
     Indication: DEPRESSION
     Dosage: 75 MG, UNK
     Route: 065
     Dates: start: 20100101
  5. VELMETIA [Concomitant]
     Indication: DIABETES MELLITUS
     Dosage: 2000/100 MG QD
     Dates: start: 20120807
  6. METFORMIN [Suspect]
     Dosage: 1700 MG, QD
     Dates: start: 19980101, end: 20120806
  7. METFORMIN [Suspect]
     Dosage: 1000 MG, UNK
     Dates: start: 20120807

REACTIONS (1)
  - Vulval cancer [Unknown]
